FAERS Safety Report 16539659 (Version 1)
Quarter: 2019Q3

REPORT INFORMATION
  Report Type: Spontaneous
  Country: NL (occurrence: NL)
  Receive Date: 20190708
  Receipt Date: 20190708
  Transmission Date: 20191004
  Serious: Yes (Death, Hospitalization)
  Sender: FDA-Public Use
  Company Number: NL-ELITE LABORATORIES INC.-2019ELT00027

PATIENT
  Age: 54 Year
  Sex: Female

DRUGS (5)
  1. RISPERIDONE. [Concomitant]
     Active Substance: RISPERIDONE
     Dosage: 2 MG, 1X/DAY
     Route: 065
  2. METHADONE HYDROCHLORIDE. [Suspect]
     Active Substance: METHADONE HYDROCHLORIDE
     Dosage: 25 MG, 1X/DAY
     Route: 065
  3. METHADONE HYDROCHLORIDE. [Suspect]
     Active Substance: METHADONE HYDROCHLORIDE
     Indication: DRUG WITHDRAWAL MAINTENANCE THERAPY
     Dosage: 45 MG
     Route: 065
  4. COCAINE [Suspect]
     Active Substance: COCAINE
     Dosage: 4 LINES
  5. METHADONE HYDROCHLORIDE. [Suspect]
     Active Substance: METHADONE HYDROCHLORIDE
     Dosage: 150 MG, ONCE
     Route: 065

REACTIONS (3)
  - Leukoencephalopathy [Fatal]
  - Catatonia [Fatal]
  - Overdose [Recovered/Resolved]
